FAERS Safety Report 14555151 (Version 1)
Quarter: 2018Q1

REPORT INFORMATION
  Report Type: Spontaneous
  Country: US (occurrence: US)
  Receive Date: 20180219
  Receipt Date: 20180219
  Transmission Date: 20180509
  Serious: Yes (Other)
  Sender: FDA-Public Use
  Company Number: None

PATIENT
  Age: 71 Year
  Sex: Female
  Weight: 54.43 kg

DRUGS (2)
  1. PRAMIPEXOLE, 1.5 MG [Suspect]
     Active Substance: PRAMIPEXOLE
     Indication: RESTLESS LEGS SYNDROME
     Route: 048
     Dates: start: 20110101, end: 20170701
  2. PRAMIPEXOLE, 1.5 MG [Suspect]
     Active Substance: PRAMIPEXOLE
     Indication: PERIODIC LIMB MOVEMENT DISORDER
     Route: 048
     Dates: start: 20110101, end: 20170701

REACTIONS (6)
  - Apathy [None]
  - Drug withdrawal syndrome [None]
  - Pancreatitis acute [None]
  - Hypersomnia [None]
  - Obsessive-compulsive disorder [None]
  - Impulse-control disorder [None]

NARRATIVE: CASE EVENT DATE: 20170701
